FAERS Safety Report 21233504 (Version 1)
Quarter: 2022Q3

REPORT INFORMATION
  Report Type: Spontaneous
  Country: US (occurrence: US)
  Receive Date: 20220819
  Receipt Date: 20220819
  Transmission Date: 20221026
  Serious: Yes (Hospitalization)
  Sender: FDA-Public Use
  Company Number: US-BIOVITRUM-2022US09428

PATIENT
  Age: 13 Year
  Sex: Female

DRUGS (4)
  1. KINERET [Suspect]
     Active Substance: ANAKINRA
     Indication: Autoinflammatory disease
     Dates: start: 20220715
  2. KINERET [Suspect]
     Active Substance: ANAKINRA
     Indication: Haemophagocytic lymphohistiocytosis
     Dates: start: 20220627
  3. OMEPRAZOLE [Concomitant]
     Active Substance: OMEPRAZOLE
  4. PREDNISONE [Concomitant]
     Active Substance: PREDNISONE

REACTIONS (10)
  - White blood cell count abnormal [Unknown]
  - Haemoglobin abnormal [Unknown]
  - Platelet count abnormal [Unknown]
  - Contusion [Unknown]
  - Cough [Unknown]
  - Productive cough [Unknown]
  - Injection site erythema [Unknown]
  - Injection site pruritus [Unknown]
  - Injection site urticaria [Unknown]
  - Off label use [Not Recovered/Not Resolved]

NARRATIVE: CASE EVENT DATE: 20220627
